FAERS Safety Report 4387725-1 (Version None)
Quarter: 2004Q2

REPORT INFORMATION
  Report Type: 
  Country: None (occurrence: None)
  Receive Date: 20040630
  Receipt Date: 20040526
  Transmission Date: 20050107
  Serious: Yes (Life-Threatening, Hospitalization)
  Sender: FDA-Public Use
  Company Number: DE-MERCK-0406DEU00021

PATIENT
  Age: 87 Year
  Sex: Female
  Weight: 68 kg

DRUGS (7)
  1. ASPIRIN [Concomitant]
     Route: 065
  2. FERROUS GLYCINE SULFATE [Concomitant]
     Route: 065
  3. GLIMEPIRIDE [Concomitant]
     Route: 065
  4. LEVOTHYROXINE SODIUM [Concomitant]
     Route: 065
  5. METOPROLOL SUCCINATE [Concomitant]
     Route: 065
  6. VIOXX [Suspect]
     Indication: ARTHRALGIA
     Route: 048
     Dates: start: 20040422, end: 20040518
  7. TORSEMIDE [Concomitant]
     Route: 065

REACTIONS (5)
  - CEREBROVASCULAR INSUFFICIENCY [None]
  - LEUKOPENIA [None]
  - RENAL FAILURE [None]
  - URINARY RETENTION [None]
  - URINARY TRACT INFECTION [None]
